FAERS Safety Report 9060168 (Version 1)
Quarter: 2013Q1

REPORT INFORMATION
  Report Type: Spontaneous
  Country: US (occurrence: None)
  Receive Date: 20130207
  Receipt Date: 20130207
  Transmission Date: 20140127
  Serious: No
  Sender: FDA-Public Use
  Company Number: None

PATIENT
  Age: 48 Year
  Sex: Female
  Weight: 77.11 kg

DRUGS (1)
  1. VENLAFAXINE [Suspect]
     Indication: AFFECTIVE DISORDER
     Dosage: 75 ML DAILY ORALLY
     Route: 048

REACTIONS (1)
  - Drug effect decreased [None]
